FAERS Safety Report 9595647 (Version 1)
Quarter: 2013Q4

REPORT INFORMATION
  Report Type: Spontaneous
  Country: US (occurrence: US)
  Receive Date: 20131004
  Receipt Date: 20131004
  Transmission Date: 20140711
  Serious: Yes (Other)
  Sender: FDA-Public Use
  Company Number: US-PFIZER INC-2013284035

PATIENT
  Age: 31 Year
  Sex: Male

DRUGS (2)
  1. CELEBREX [Suspect]
     Dosage: UNK
  2. ADVIL [Suspect]
     Dosage: UNK

REACTIONS (2)
  - Gastric haemorrhage [Unknown]
  - Ulcer [Unknown]
